FAERS Safety Report 8031615-X (Version None)
Quarter: 2012Q1

REPORT INFORMATION
  Report Type: 
  Country: None (occurrence: None)
  Receive Date: 20120109
  Receipt Date: 20120104
  Transmission Date: 20120608
  Serious: Yes (Hospitalization)
  Sender: FDA-Public Use
  Company Number: PHHY2012GB000759

PATIENT
  Age: 62 Year
  Sex: Male
  Weight: 75 kg

DRUGS (2)
  1. INFLIXIMAB [Suspect]
     Indication: CROHN'S DISEASE
     Dosage: 5 MG/KG, UNK
     Route: 042
     Dates: start: 20100401, end: 20110906
  2. METHOTREXATE [Suspect]
     Indication: CROHN'S DISEASE
     Dosage: 25 MG, UNK
     Route: 048
     Dates: start: 20110510, end: 20111011

REACTIONS (1)
  - HYPERGAMMAGLOBULINAEMIA BENIGN MONOCLONAL [None]
